FAERS Safety Report 24788608 (Version 1)
Quarter: 2024Q4

REPORT INFORMATION
  Report Type: Report from Study
  Country: US (occurrence: US)
  Receive Date: 20241230
  Receipt Date: 20241230
  Transmission Date: 20250115
  Serious: Yes (Hospitalization)
  Sender: ITALFARMACO SPA
  Company Number: US-ITALFARMACO SPA-2168014

PATIENT
  Age: 83 Year
  Sex: Female
  Weight: 46.25 kg

DRUGS (10)
  1. TIGLUTIK [Suspect]
     Active Substance: RILUZOLE
     Indication: Amyotrophic lateral sclerosis
     Dates: start: 20241123
  2. NORVASC [Concomitant]
     Active Substance: AMLODIPINE BESYLATE
  3. ZOCOR [Concomitant]
     Active Substance: SIMVASTATIN
  4. RADICAVA [Concomitant]
     Active Substance: EDARAVONE
  5. PAXIL [Concomitant]
     Active Substance: PAROXETINE HYDROCHLORIDE
  6. TOPROL XL [Concomitant]
     Active Substance: METOPROLOL SUCCINATE
  7. ATIVAN [Concomitant]
     Active Substance: LORAZEPAM
  8. PLAQUENIL [Concomitant]
     Active Substance: HYDROXYCHLOROQUINE SULFATE
  9. ROBINUL [Concomitant]
     Active Substance: GLYCOPYRROLATE
  10. PLAVIX [Concomitant]
     Active Substance: CLOPIDOGREL BISULFATE

REACTIONS (6)
  - Asthenia [Recovered/Resolved]
  - Headache [Unknown]
  - Dizziness [Unknown]
  - Nausea [Unknown]
  - Gastrostomy [Recovered/Resolved]
  - Malaise [Recovered/Resolved]

NARRATIVE: CASE EVENT DATE: 20241123
